FAERS Safety Report 23737897 (Version 1)
Quarter: 2024Q2

REPORT INFORMATION
  Report Type: Spontaneous
  Country: US (occurrence: US)
  Receive Date: 20240412
  Receipt Date: 20240412
  Transmission Date: 20240716
  Serious: No
  Sender: FDA-Public Use
  Company Number: US-FreseniusKabi-FK202405814

PATIENT

DRUGS (1)
  1. HEPARIN SODIUM [Suspect]
     Active Substance: HEPARIN SODIUM
     Indication: Anticoagulant therapy
     Dosage: HEPARIN INTRAVENOUSLY (NOT SUBCUTANEOUSLY)?FORM OF ADMIN: INJECTION
     Route: 042

REACTIONS (1)
  - Drug ineffective [Unknown]
